FAERS Safety Report 18058021 (Version 2)
Quarter: 2020Q3

REPORT INFORMATION
  Report Type: Spontaneous
  Country: DE (occurrence: DE)
  Receive Date: 20200723
  Receipt Date: 20200731
  Transmission Date: 20201103
  Serious: Yes (Hospitalization, Other)
  Sender: FDA-Public Use
  Company Number: DE-AUROBINDO-AUR-APL-2020-036052

PATIENT
  Sex: Male

DRUGS (1)
  1. VALSARTAN AUROBINDO, FILM?COATED TABLETS 80MG [Suspect]
     Active Substance: VALSARTAN
     Indication: PRODUCT USED FOR UNKNOWN INDICATION
     Dosage: UNK
     Route: 065

REACTIONS (4)
  - Surgery [Unknown]
  - Bladder cancer [Unknown]
  - Prostate cancer [Unknown]
  - Impaired work ability [Unknown]
